FAERS Safety Report 8218751-X (Version None)
Quarter: 2012Q1

REPORT INFORMATION
  Report Type: 
  Country: None (occurrence: None)
  Receive Date: 20120319
  Receipt Date: 20120313
  Transmission Date: 20120608
  Serious: Yes (Other)
  Sender: FDA-Public Use
  Company Number: PHEH2012US003675

PATIENT
  Sex: Female

DRUGS (4)
  1. THYROID TAB [Concomitant]
     Dosage: UNK
  2. MULTI-VITAMINS [Concomitant]
     Dosage: UNK
  3. DIOVAN [Suspect]
     Dosage: 320 MG, QD
  4. CRESTOR [Concomitant]
     Dosage: UNK

REACTIONS (9)
  - NAUSEA [None]
  - DIZZINESS [None]
  - LOSS OF CONSCIOUSNESS [None]
  - BLOOD PRESSURE FLUCTUATION [None]
  - FEELING ABNORMAL [None]
  - DRUG INEFFECTIVE [None]
  - VIRAL INFECTION [None]
  - BOWEL MOVEMENT IRREGULARITY [None]
  - MALAISE [None]
